FAERS Safety Report 6813403-2 (Version None)
Quarter: 2010Q3

REPORT INFORMATION
  Report Type: 
  Country: None (occurrence: None)
  Receive Date: 20100701
  Receipt Date: 20100621
  Transmission Date: 20110219
  Serious: Yes (Death)
  Sender: FDA-Public Use
  Company Number: CN-PFIZER INC-2009288033

PATIENT
  Weight: 3.8 kg

DRUGS (1)
  1. LIPITOR [Suspect]
     Dosage: 20 MG, 1X/DAY
     Route: 064
     Dates: start: 20090401, end: 20090920

REACTIONS (2)
  - CHOKING [None]
  - DRUG EXPOSURE DURING PREGNANCY [None]
